FAERS Safety Report 9619924 (Version 3)
Quarter: 2013Q4

REPORT INFORMATION
  Report Type: Report from Study
  Country: US (occurrence: US)
  Receive Date: 20131014
  Receipt Date: 20131017
  Transmission Date: 20140711
  Serious: Yes (Hospitalization)
  Sender: FDA-Public Use
  Company Number: US-ABBVIE-13P-163-1144524-00

PATIENT
  Age: 46 Year
  Sex: Female

DRUGS (7)
  1. HUMIRA [Suspect]
     Indication: RHEUMATOID ARTHRITIS
     Route: 058
     Dates: start: 20130703, end: 20130901
  2. VIVELLE-DOT [Concomitant]
     Indication: OESTROGEN REPLACEMENT THERAPY
  3. NOVOLOG [Concomitant]
     Indication: DIABETES MELLITUS
     Dosage: 70/30 INSULIN SLIDING SCALE
     Route: 058
  4. VICTOZA [Concomitant]
     Indication: DIABETES MELLITUS
     Dosage: AT BEDTIME
     Route: 058
  5. METFORMIN [Concomitant]
     Indication: DIABETES MELLITUS
     Route: 048
  6. IMITREX [Concomitant]
     Indication: MIGRAINE
     Route: 048
  7. NORCO [Concomitant]
     Indication: PAIN
     Dosage: 10/325 MG DAILY

REACTIONS (6)
  - Dermatitis contact [Unknown]
  - Herpes zoster [Not Recovered/Not Resolved]
  - Pharyngeal erythema [Not Recovered/Not Resolved]
  - Lymphadenopathy [Not Recovered/Not Resolved]
  - Acarodermatitis [Not Recovered/Not Resolved]
  - Decreased immune responsiveness [Not Recovered/Not Resolved]
